FAERS Safety Report 10195733 (Version 3)
Quarter: 2015Q2

REPORT INFORMATION
  Report Type: Spontaneous
  Country: DE (occurrence: DE)
  Receive Date: 20140527
  Receipt Date: 20150626
  Transmission Date: 20150821
  Serious: Yes (Life-Threatening, Hospitalization)
  Sender: FDA-Public Use
  Company Number: DE-UCBSA-121358

PATIENT
  Age: 42 Year
  Sex: Female
  Weight: 55 kg

DRUGS (8)
  1. PREDNISOLONE. [Suspect]
     Active Substance: PREDNISOLONE
     Indication: RHEUMATOID ARTHRITIS
     Dosage: UPTO 25 MG, AS NEEDED (PRN)
     Route: 048
     Dates: start: 201308
  2. VIGANTOLETTEN [Concomitant]
     Active Substance: CHOLECALCIFEROL
     Indication: OSTEOPOROSIS
     Dosage: 1000 IU, ONCE DAILY (QD)
     Route: 048
     Dates: start: 201312
  3. VIGANTOLETTEN [Concomitant]
     Active Substance: CHOLECALCIFEROL
     Indication: VITAMIN D DEFICIENCY
  4. CIMZIA [Suspect]
     Active Substance: CERTOLIZUMAB PEGOL
     Dosage: 200 MG, EV 2 WEEKS(QOW)
     Route: 058
     Dates: start: 201311, end: 201405
  5. DICLOFENAC [Concomitant]
     Active Substance: DICLOFENAC
     Indication: RHEUMATOID ARTHRITIS
     Dosage: 50 MG, AS NEEDED (PRN)
     Route: 048
     Dates: start: 201308
  6. CIMZIA [Suspect]
     Active Substance: CERTOLIZUMAB PEGOL
     Indication: RHEUMATOID ARTHRITIS
     Dosage: 400 MG, MONTHLY (QM)
     Route: 058
     Dates: start: 201211, end: 201311
  7. PREDNISOLONE. [Suspect]
     Active Substance: PREDNISOLONE
     Indication: HYPERCOAGULATION
  8. VITAMIN B12 [Concomitant]
     Active Substance: CYANOCOBALAMIN
     Indication: VITAMIN B12 DEFICIENCY
     Dosage: 1000 ?G, EV 4 WEEKS
     Route: 058
     Dates: start: 201401

REACTIONS (6)
  - Menorrhagia [Unknown]
  - Thrombocytopenia [Recovered/Resolved]
  - Inappropriate schedule of drug administration [Unknown]
  - Rash [Unknown]
  - Pyrexia [Unknown]
  - Hypersensitivity [Unknown]

NARRATIVE: CASE EVENT DATE: 2012
